FAERS Safety Report 8086856-2 (Version None)
Quarter: 2012Q1

REPORT INFORMATION
  Report Type: 
  Country: None (occurrence: None)
  Receive Date: 20120128
  Receipt Date: 20110519
  Transmission Date: 20120608
  Serious: No
  Sender: FDA-Public Use
  Company Number: US-ABBOTT-11P-163-0727132-00

PATIENT
  Age: 63 Year
  Sex: Male

DRUGS (16)
  1. ACETAMINOPHEN [Concomitant]
     Indication: PAIN
  2. ACETAMINOPHEN [Concomitant]
     Indication: PSORIASIS
  3. IBUPROFEN [Concomitant]
     Indication: HEADACHE
  4. BENADRYL [Concomitant]
     Indication: PSORIASIS
  5. DIOVAN [Concomitant]
     Indication: HYPERTENSION
  6. CYMBALTA [Concomitant]
     Indication: ANXIETY
  7. LOVASTATIN [Concomitant]
     Indication: BLOOD CHOLESTEROL INCREASED
     Dosage: 1 1/2 TABS DAILY WITH EVENINIG MEAL
  8. CYMBALTA [Concomitant]
     Indication: DEPRESSION
  9. ACETAMINOPHEN [Concomitant]
     Indication: HEADACHE
  10. BENADRYL [Concomitant]
     Indication: PRURITUS
  11. METFFORMIN HYDROCHLORIDE [Concomitant]
     Indication: TYPE 2 DIABETES MELLITUS
     Dosage: 2 TABS IN AM AND TWO TABS IN PM
  12. IBUPROFEN [Concomitant]
     Indication: PSORIASIS
  13. DIPYRIDAMOLE [Concomitant]
     Indication: THROMBOSIS
  14. HUMIRA [Suspect]
     Indication: PSORIASIS
     Dates: start: 20110505
  15. DIPYRIDAMOLE [Concomitant]
     Indication: BLOOD CHOLESTEROL INCREASED
  16. IBUPROFEN [Concomitant]
     Indication: PAIN

REACTIONS (2)
  - INJECTION SITE PAIN [None]
  - INJECTION SITE HAEMORRHAGE [None]
